FAERS Safety Report 5156834-1 (Version None)
Quarter: 2006Q4

REPORT INFORMATION
  Report Type: 
  Country: None (occurrence: None)
  Receive Date: 20061115
  Receipt Date: 20061109
  Transmission Date: 20070319
  Serious: Yes (Life-Threatening, Hospitalization)
  Sender: FDA-Public Use
  Company Number: 163-20785-06100622

PATIENT
  Age: 71 Year
  Sex: Female

DRUGS (22)
  1. THALOMID [Suspect]
     Indication: MULTIPLE MYELOMA
     Dosage: 50 MG, Q HS, ORAL
     Route: 048
     Dates: start: 20060915, end: 20060919
  2. THALOMID [Suspect]
     Indication: MULTIPLE MYELOMA
     Dosage: 50 MG, Q HS, ORAL
     Route: 048
     Dates: start: 20061010
  3. EPOGEN [Concomitant]
  4. TYLENOL [Concomitant]
  5. CORTISONE ACETATE [Concomitant]
  6. CLYNAMISNE [Concomitant]
  7. VIT B COMPLEXT (VIT B, IN COMBINATION WITH VITAMIN B6 AND B12) [Concomitant]
  8. LIPITOR [Concomitant]
  9. ATENOLOL [Concomitant]
  10. ASPIRIN [Concomitant]
  11. PREVACID [Concomitant]
  12. FOLIC ACID [Concomitant]
  13. CALCIUM (CALCIUM) [Concomitant]
  14. ASCORBIC ACID [Concomitant]
  15. VITAMIN A [Concomitant]
  16. CIPRO [Concomitant]
  17. CLINDAMYCIN (CLINDAMYCIN) [Concomitant]
  18. MACRODANTIN [Concomitant]
  19. METOCLOPRAMIDE [Concomitant]
  20. MINERALS (PARAFFIN) [Concomitant]
  21. DECADRON [Concomitant]
  22. FLAGYL [Concomitant]

REACTIONS (10)
  - ABDOMINAL DISCOMFORT [None]
  - ABDOMINAL PAIN [None]
  - BACK PAIN [None]
  - DIVERTICULITIS [None]
  - FATIGUE [None]
  - LARGE INTESTINE PERFORATION [None]
  - NAUSEA [None]
  - NIGHT SWEATS [None]
  - PYREXIA [None]
  - WHITE BLOOD CELL COUNT DECREASED [None]
